FAERS Safety Report 5351615-8 (Version None)
Quarter: 2007Q2

REPORT INFORMATION
  Report Type: 
  Country: None (occurrence: None)
  Receive Date: 20070522
  Receipt Date: 20070322
  Transmission Date: 20071010
  Serious: Yes (Hospitalization)
  Sender: FDA-Public Use
  Company Number: 2007BH002850

PATIENT
  Age: 36 Year
  Sex: Female

DRUGS (1)
  1. HEPARIN SODIUM [Suspect]
     Indication: PROPHYLAXIS
     Dosage: 1500 UNITS;ONCE;IV
     Route: 042
     Dates: start: 20070220, end: 20070220

REACTIONS (1)
  - INJECTION SITE HAEMATOMA [None]
